FAERS Safety Report 8935851 (Version 1)
Quarter: 2012Q4

REPORT INFORMATION
  Report Type: 
  Country: JP (occurrence: JP)
  Receive Date: 20121130
  Receipt Date: 20121130
  Transmission Date: 20130627
  Serious: Yes (Death)
  Sender: FDA-Public Use
  Company Number: JP-JNJFOC-20121114472

PATIENT

DRUGS (1)
  1. DORIPENEM [Suspect]
     Indication: NEUTROPENIC SEPSIS
     Dosage: over 30 minutes
     Route: 042

REACTIONS (1)
  - Sepsis [Fatal]
